FAERS Safety Report 5886673-5 (Version None)
Quarter: 2008Q3

REPORT INFORMATION
  Report Type: 
  Country: None (occurrence: None)
  Receive Date: 20080917
  Receipt Date: 20080910
  Transmission Date: 20090109
  Serious: Yes (Other)
  Sender: FDA-Public Use
  Company Number: PHHY2008NL20949

PATIENT
  Sex: Female

DRUGS (7)
  1. EXELON [Suspect]
     Indication: PARKINSON'S DISEASE
     Dosage: TWO  4.6MG PATCHES
  2. EXELON [Suspect]
     Dosage: ONE 4.6MG PATCH
  3. PARLODEL [Concomitant]
     Dosage: TWICE 2.5
  4. MADOPAR [Concomitant]
     Dosage: THREE TIMES 250MG
  5. SEROQUEL [Concomitant]
     Dosage: 1DD,25
  6. MOVICOLON [Concomitant]
     Dosage: 1DD
  7. NOROXIN [Concomitant]
     Dosage: 1DD

REACTIONS (2)
  - ABASIA [None]
  - DEPRESSED LEVEL OF CONSCIOUSNESS [None]
